FAERS Safety Report 5104116-6 (Version None)
Quarter: 2006Q3

REPORT INFORMATION
  Report Type: 
  Country: None (occurrence: None)
  Receive Date: 20060913
  Receipt Date: 20060907
  Transmission Date: 20061208
  Serious: Yes (Disabling)
  Sender: FDA-Public Use
  Company Number: US-MERCK-0609USA01426

PATIENT
  Age: 59 Year
  Sex: Male

DRUGS (14)
  1. VYTORIN [Suspect]
     Indication: BLOOD CHOLESTEROL INCREASED
     Route: 048
     Dates: start: 20060301, end: 20060701
  2. TRICOR [Concomitant]
     Route: 065
     Dates: end: 20060801
  3. GLUCOPHAGE [Concomitant]
     Route: 065
  4. ALBUTEROL [Concomitant]
     Route: 065
  5. GLYBURIDE [Concomitant]
     Route: 065
  6. LANTUS [Concomitant]
     Route: 065
  7. ALLOPURINOL [Concomitant]
     Route: 065
  8. ATACAND [Concomitant]
     Route: 065
  9. METOPROLOL [Concomitant]
     Route: 065
  10. OMEPRAZOLE [Concomitant]
     Route: 065
  11. RANITIDINE [Concomitant]
     Route: 065
  12. CIPRO [Concomitant]
     Route: 065
  13. ANTIMICROBIAL (UNSPECIFIED) [Concomitant]
     Route: 065
  14. HUMALOG [Concomitant]
     Route: 065

REACTIONS (4)
  - DIPLOPIA [None]
  - HEADACHE [None]
  - INTERVERTEBRAL DISC PROTRUSION [None]
  - MYOPATHY [None]
